FAERS Safety Report 16748104 (Version 1)
Quarter: 2019Q3

REPORT INFORMATION
  Report Type: Report from Study
  Country: US (occurrence: US)
  Receive Date: 20190827
  Receipt Date: 20190827
  Transmission Date: 20191005
  Serious: Yes (Hospitalization)
  Sender: FDA-Public Use
  Company Number: US-ACTELION-A-US2017-157336

PATIENT
  Age: 58 Year
  Sex: Female

DRUGS (3)
  1. NEXIUM [Concomitant]
     Active Substance: ESOMEPRAZOLE MAGNESIUM
     Dosage: 40 MG, QD
  2. OPSUMIT [Suspect]
     Active Substance: MACITENTAN
     Indication: PULMONARY ARTERIAL HYPERTENSION
     Dosage: 10 MG, QD
     Route: 048
     Dates: start: 20170629
  3. ZANTAC [Concomitant]
     Active Substance: RANITIDINE HYDROCHLORIDE
     Dosage: UNK, PRN

REACTIONS (11)
  - Depression [Unknown]
  - Dyspnoea [Recovered/Resolved]
  - Sleep disorder [Unknown]
  - Blood pressure abnormal [Unknown]
  - Hypotension [Recovered/Resolved]
  - Blood sodium decreased [Recovered/Resolved]
  - Dehydration [Recovered/Resolved]
  - Ligament sprain [Not Recovered/Not Resolved]
  - Malaise [Not Recovered/Not Resolved]
  - Therapy non-responder [Unknown]
  - Product dose omission [Unknown]

NARRATIVE: CASE EVENT DATE: 20170721
